FAERS Safety Report 4898770-1 (Version None)
Quarter: 2006Q1

REPORT INFORMATION
  Report Type: 
  Country: None (occurrence: None)
  Receive Date: 20060127
  Receipt Date: 20060118
  Transmission Date: 20060701
  Serious: Yes (Hospitalization, Other)
  Sender: FDA-Public Use
  Company Number: 163-20785-05120407

PATIENT
  Age: 68 Year
  Sex: Male

DRUGS (1)
  1. THALOMID [Suspect]
     Indication: MULTIPLE MYELOMA
     Dosage: 200 MG, QHS, ORAL
     Route: 048
     Dates: start: 20050818, end: 20051001

REACTIONS (2)
  - ANGINA UNSTABLE [None]
  - CORONARY ARTERY DISEASE [None]
